FAERS Safety Report 5514070-0 (Version None)
Quarter: 2007Q4

REPORT INFORMATION
  Report Type: 
  Country: None (occurrence: None)
  Receive Date: 20071109
  Receipt Date: 20071109
  Transmission Date: 20080405
  Serious: Yes (Hospitalization)
  Sender: FDA-Public Use
  Company Number: None

PATIENT
  Age: 64 Year
  Sex: Male

DRUGS (1)
  1. AMLODIPINE [Suspect]
     Indication: SCHIZOAFFECTIVE DISORDER
     Dosage: 10MG  EVERY DAY  PO
     Route: 048
     Dates: start: 20070716, end: 20070822

REACTIONS (4)
  - DYSPNOEA [None]
  - FLUID OVERLOAD [None]
  - OEDEMA PERIPHERAL [None]
  - WEIGHT INCREASED [None]
